FAERS Safety Report 9001965 (Version 1)
Quarter: 2013Q1

REPORT INFORMATION
  Report Type: Spontaneous
  Country: FR (occurrence: FR)
  Receive Date: 20130108
  Receipt Date: 20130108
  Transmission Date: 20140127
  Serious: Yes (Hospitalization)
  Sender: FDA-Public Use
  Company Number: FR-BIOGENIDEC-2013BI000495

PATIENT
  Age: 39 Year
  Sex: Female

DRUGS (8)
  1. TYSABRI [Suspect]
     Indication: MULTIPLE SCLEROSIS
     Route: 042
     Dates: start: 20100910, end: 20120917
  2. SERESTA [Concomitant]
     Indication: ANXIETY
  3. MANTADIX [Concomitant]
     Indication: MIGRAINE
  4. ALPRAZOLAM [Concomitant]
     Indication: ANXIETY
     Route: 048
  5. CERIS [Concomitant]
     Indication: URINARY INCONTINENCE
     Route: 048
  6. TAREG [Concomitant]
     Indication: HYPERTENSION
     Route: 048
  7. DIHYDROERGOTAMINE [Concomitant]
     Indication: MIGRAINE
     Route: 048
  8. ZOLPIDEM [Concomitant]
     Indication: INSOMNIA
     Route: 048

REACTIONS (5)
  - Abnormal behaviour [Recovered/Resolved]
  - Dysarthria [Recovered/Resolved]
  - Aphasia [Recovered/Resolved]
  - Balance disorder [Recovered/Resolved]
  - Visual impairment [Recovered/Resolved]
